FAERS Safety Report 8299605-X (Version None)
Quarter: 2012Q2

REPORT INFORMATION
  Report Type: 
  Country: None (occurrence: None)
  Receive Date: 20120419
  Receipt Date: 20120410
  Transmission Date: 20120825
  Serious: Yes (Other)
  Sender: FDA-Public Use
  Company Number: CA-GLAXOSMITHKLINE-A0972434A

PATIENT
  Sex: Female
  Weight: 64 kg

DRUGS (4)
  1. PROMETIN [Concomitant]
     Dosage: 2U PER DAY
     Route: 048
     Dates: start: 19990101
  2. MALARONE [Suspect]
     Indication: PROPHYLAXIS
     Route: 065
  3. INDAPAMIDE [Concomitant]
     Indication: BLOOD PRESSURE INCREASED
     Dosage: 1.25MG UNKNOWN
     Route: 048
     Dates: start: 19950401
  4. OGEN [Concomitant]
     Indication: MENOPAUSE
     Dosage: 1.25U UNKNOWN
     Route: 048
     Dates: start: 19950101

REACTIONS (5)
  - HEPATIC FUNCTION ABNORMAL [None]
  - URTICARIA [None]
  - FATIGUE [None]
  - NAUSEA [None]
  - ALANINE AMINOTRANSFERASE INCREASED [None]
